FAERS Safety Report 11189425 (Version 1)
Quarter: 2015Q2

REPORT INFORMATION
  Report Type: Spontaneous
  Country: US (occurrence: US)
  Receive Date: 20150615
  Receipt Date: 20150615
  Transmission Date: 20150821
  Serious: Yes (Death, Other)
  Sender: FDA-Public Use
  Company Number: US-PFIZER INC-2015195635

PATIENT
  Age: 57 Year
  Sex: Female
  Weight: 108 kg

DRUGS (2)
  1. CEFTRIAXONE. [Suspect]
     Active Substance: CEFTRIAXONE
     Dosage: 1 G, UNK
  2. DEPO-MEDROL [Suspect]
     Active Substance: METHYLPREDNISOLONE ACETATE
     Dosage: 100 MG, UNK

REACTIONS (3)
  - Dyspnoea [Unknown]
  - Chest pain [Unknown]
  - Anaphylactic reaction [Fatal]

NARRATIVE: CASE EVENT DATE: 20131105
